FAERS Safety Report 20186195 (Version 1)
Quarter: 2021Q4

REPORT INFORMATION
  Report Type: Spontaneous
  Country: NZ (occurrence: NZ)
  Receive Date: 20211215
  Receipt Date: 20211215
  Transmission Date: 20220303
  Serious: Yes (Life-Threatening)
  Sender: FDA-Public Use
  Company Number: NZ-ABBVIE-16P-118-1663685-00

PATIENT
  Age: 61 Year
  Sex: Female

DRUGS (2)
  1. EPILIM [Suspect]
     Active Substance: VALPROATE SODIUM
     Indication: Seizure
     Dosage: TIME TO ONSET: 1 MONTH(S)
     Route: 048
     Dates: start: 20140512, end: 201406
  2. CLOBAZAM [Suspect]
     Active Substance: CLOBAZAM
     Indication: Seizure
     Dosage: TIME TO ONSET: 1 MONTH(S)
     Route: 048
     Dates: start: 20140512, end: 201406

REACTIONS (1)
  - Hepatic enzyme increased [Recovered/Resolved]

NARRATIVE: CASE EVENT DATE: 20140601
